FAERS Safety Report 21756493 (Version 1)
Quarter: 2022Q4

REPORT INFORMATION
  Report Type: Report from Study
  Country: US (occurrence: US)
  Receive Date: 20221220
  Receipt Date: 20221220
  Transmission Date: 20230113
  Serious: Yes (Hospitalization, Disabling, Other)
  Sender: FDA-Public Use
  Company Number: US-ABBVIE-4243826

PATIENT
  Sex: Female

DRUGS (3)
  1. HUMIRA [Suspect]
     Active Substance: ADALIMUMAB
     Indication: Psoriasis
     Dosage: CF
     Route: 058
     Dates: end: 202203
  2. HUMIRA [Suspect]
     Active Substance: ADALIMUMAB
     Dosage: CF
     Route: 058
  3. Covid-19 Vaccine [Concomitant]
     Indication: COVID-19 immunisation
     Route: 030

REACTIONS (10)
  - Multiple sclerosis [Unknown]
  - Cerebrovascular accident [Unknown]
  - Asthenia [Unknown]
  - Tremor [Unknown]
  - Visual impairment [Unknown]
  - Hypoaesthesia [Unknown]
  - Psoriasis [Unknown]
  - Balance disorder [Unknown]
  - Pain [Unknown]
  - Therapeutic product effect incomplete [Unknown]
